FAERS Safety Report 9317130 (Version 1)
Quarter: 2013Q2

REPORT INFORMATION
  Report Type: Spontaneous
  Country: US (occurrence: US)
  Receive Date: 20130530
  Receipt Date: 20130530
  Transmission Date: 20140414
  Serious: No
  Sender: FDA-Public Use
  Company Number: US-NOVEN-12US004730

PATIENT
  Sex: Male

DRUGS (1)
  1. DAYTRANA [Suspect]
     Indication: PRODUCT USED FOR UNKNOWN INDICATION

REACTIONS (2)
  - Somnolence [Unknown]
  - Off label use [Unknown]
